FAERS Safety Report 6215817-0 (Version None)
Quarter: 2009Q2

REPORT INFORMATION
  Report Type: 
  Country: None (occurrence: None)
  Receive Date: 20090605
  Receipt Date: 20090528
  Transmission Date: 20091009
  Serious: Yes (Hospitalization, Other)
  Sender: FDA-Public Use
  Company Number: US-AMGEN-KDL346340

PATIENT
  Sex: Male
  Weight: 84.4 kg

DRUGS (3)
  1. PROCRIT [Suspect]
     Indication: HEPATITIS C
     Route: 058
     Dates: start: 20090302, end: 20090421
  2. INTERFERON [Concomitant]
     Route: 058
     Dates: start: 20090108
  3. RIBAVIRIN [Concomitant]
     Route: 048
     Dates: start: 20090108

REACTIONS (2)
  - DRUG INEFFECTIVE [None]
  - HOSPITALISATION [None]
